FAERS Safety Report 6475096-6 (Version None)
Quarter: 2009Q4

REPORT INFORMATION
  Report Type: 
  Country: None (occurrence: None)
  Receive Date: 20091204
  Receipt Date: 20090803
  Transmission Date: 20100525
  Serious: Yes (Hospitalization, Other)
  Sender: FDA-Public Use
  Company Number: US-ELI_LILLY_AND_COMPANY-US200903003074

PATIENT
  Sex: Female

DRUGS (14)
  1. HUMULIN 70/30 [Suspect]
     Dates: start: 20000101
  2. HUMULIN 70/30 [Suspect]
     Dosage: 40 U, EACH MORNING
     Dates: start: 20000101
  3. HUMULIN 70/30 [Suspect]
     Dosage: UNK, AS NEEDED
     Dates: start: 20000101
  4. HUMULIN 70/30 [Suspect]
     Dosage: 40 U, EACH MORNING
     Dates: start: 19930101, end: 20000101
  5. HUMULIN 70/30 [Suspect]
     Dosage: UNK, AS NEEDED
     Dates: start: 19930101, end: 20000101
  6. ULTRAM [Concomitant]
  7. NEURONTIN [Concomitant]
     Indication: NEUROPATHY PERIPHERAL
  8. DARVOCET [Concomitant]
     Indication: BACK PAIN
  9. LORAZEPAM [Concomitant]
     Indication: NERVOUSNESS
  10. PAXIL [Concomitant]
     Indication: NERVOUSNESS
  11. LASIX [Concomitant]
     Indication: BLADDER DISORDER
  12. PRILOSEC [Concomitant]
     Indication: GASTROINTESTINAL DISORDER
  13. NEXIUM [Concomitant]
     Indication: GASTROINTESTINAL DISORDER
  14. PLAVIX [Concomitant]
     Indication: ANTICOAGULANT THERAPY

REACTIONS (11)
  - BLINDNESS UNILATERAL [None]
  - CEREBROVASCULAR ACCIDENT [None]
  - CORONARY ARTERY DISEASE [None]
  - EYE HAEMORRHAGE [None]
  - GAIT DISTURBANCE [None]
  - GALLBLADDER OPERATION [None]
  - GLAUCOMA [None]
  - NEUROPATHY PERIPHERAL [None]
  - TOE AMPUTATION [None]
  - TOOTH FRACTURE [None]
  - VISUAL ACUITY REDUCED [None]
